FAERS Safety Report 9426636 (Version 1)
Quarter: 2013Q3

REPORT INFORMATION
  Report Type: Spontaneous
  Country: US (occurrence: None)
  Receive Date: 20130729
  Receipt Date: 20130729
  Transmission Date: 20140515
  Serious: No
  Sender: FDA-Public Use
  Company Number: None

PATIENT
  Age: 66 Year
  Sex: Female
  Weight: 62.14 kg

DRUGS (6)
  1. NITROFURANTOIN - RATIOPHARM 100 MG [Suspect]
     Indication: URINARY TRACT INFECTION
     Route: 048
     Dates: start: 20130715, end: 20130715
  2. LOSARTAN [Concomitant]
  3. FISH OIL [Concomitant]
  4. MULTIPLE VITAMINS C, B, D [Concomitant]
  5. LOW DOSE ASPIRIN [Concomitant]
  6. MAGNESIUM [Concomitant]

REACTIONS (4)
  - Pyrexia [None]
  - Chills [None]
  - Headache [None]
  - Ocular hyperaemia [None]
